FAERS Safety Report 23099159 (Version 5)
Quarter: 2023Q4

REPORT INFORMATION
  Report Type: Spontaneous
  Country: ES (occurrence: ES)
  Receive Date: 20231024
  Receipt Date: 20231207
  Transmission Date: 20240110
  Serious: Yes (Congenital Anomaly)
  Sender: FDA-Public Use
  Company Number: ES-BIOGEN-2023BI01232174

PATIENT

DRUGS (1)
  1. TYSABRI [Suspect]
     Active Substance: NATALIZUMAB
     Indication: Maternal exposure timing unspecified
     Route: 050

REACTIONS (2)
  - Aberrant aortic arch [Unknown]
  - Foetal exposure during pregnancy [Not Recovered/Not Resolved]
